FAERS Safety Report 6925907-2 (Version None)
Quarter: 2010Q3

REPORT INFORMATION
  Report Type: 
  Country: None (occurrence: None)
  Receive Date: 20100816
  Receipt Date: 20100803
  Transmission Date: 20110219
  Serious: Yes (Hospitalization, Other)
  Sender: FDA-Public Use
  Company Number: PHHY2010AU00477

PATIENT
  Sex: Male

DRUGS (14)
  1. CLOZARIL [Suspect]
     Indication: SCHIZOPHRENIA
     Dosage: 200 MG NOCTE
     Route: 048
     Dates: start: 20091130
  2. CLOZARIL [Suspect]
     Dosage: 200 MG NOCTE
     Route: 048
     Dates: start: 20091208, end: 20091230
  3. CLOZARIL [Suspect]
     Dosage: 25 MG BD
     Dates: start: 20100607
  4. CLOZARIL [Suspect]
     Dosage: 225 MG
     Dates: start: 20100607
  5. RISPERIDONE [Concomitant]
     Indication: PSYCHOTIC DISORDER
     Dosage: 3 MG, UNK
     Route: 048
     Dates: start: 20090727
  6. RISPERIDONE [Concomitant]
     Dosage: 6 MG, UNK
     Route: 048
  7. EFFEXOR XR [Concomitant]
     Dosage: 75 MG, DAILY
  8. DIAZEPAM [Concomitant]
     Indication: AGITATION
     Dosage: 10-15 MG DAILY
     Route: 048
     Dates: start: 20100312
  9. DIAZEPAM [Concomitant]
     Dosage: UNK
  10. VENLAFAXINE [Concomitant]
     Indication: DEPRESSION
     Dosage: 75 MG MANE
     Route: 048
  11. OLANZAPINE [Concomitant]
     Dosage: 10 MG AT NIGHT
  12. DIAZEPAM [Concomitant]
  13. NICOTINE [Concomitant]
     Dosage: 14 UG, PRN
  14. ALBUTEROL SULFATE AUTOHALER [Concomitant]
     Dosage: UNK

REACTIONS (11)
  - BLOOD CREATINE PHOSPHOKINASE INCREASED [None]
  - BLOOD CREATINE PHOSPHOKINASE MB INCREASED [None]
  - CHEST PAIN [None]
  - ELECTROCARDIOGRAM QT PROLONGED [None]
  - HEART RATE INCREASED [None]
  - MYOPATHY [None]
  - MYOSITIS [None]
  - PALLOR [None]
  - PALPITATIONS [None]
  - PYREXIA [None]
  - SINUS TACHYCARDIA [None]
